FAERS Safety Report 7057333-2 (Version None)
Quarter: 2010Q4

REPORT INFORMATION
  Report Type: 
  Country: None (occurrence: None)
  Receive Date: 20101022
  Receipt Date: 20101012
  Transmission Date: 20110411
  Serious: Yes (Death)
  Sender: FDA-Public Use
  Company Number: US-MYLANLABS-2010S1018785

PATIENT
  Sex: Female

DRUGS (4)
  1. FENTANYL [Suspect]
     Dosage: REPLACE PATCH EVERY 3 DAYS
     Route: 062
     Dates: start: 20070707
  2. OXYCODONE [Suspect]
     Dosage: 1 - 4 TABS EVERY 6 HOURS
  3. PERCOCET [Suspect]
     Dosage: 1 OR 2 EVERY 4-6 HOURS
  4. FLEXERIL [Suspect]

REACTIONS (1)
  - DRUG TOXICITY [None]
